FAERS Safety Report 5176908-9 (Version None)
Quarter: 2006Q4

REPORT INFORMATION
  Report Type: 
  Country: None (occurrence: None)
  Receive Date: 20061212
  Receipt Date: 20061212
  Transmission Date: 20070319
  Serious: No
  Sender: FDA-Public Use
  Company Number: None

PATIENT
  Sex: Female
  Weight: 56.6996 kg

DRUGS (1)
  1. CLINDAMYCIN HCL [Suspect]
     Indication: URINARY TRACT INFECTION
     Dosage: 300 MG  3X/DAY ORAL
     Route: 048
     Dates: start: 20061120, end: 20061121

REACTIONS (2)
  - CHEST PAIN [None]
  - HEART RATE INCREASED [None]
